FAERS Safety Report 12154574 (Version 5)
Quarter: 2016Q2

REPORT INFORMATION
  Report Type: Report from Study
  Country: US (occurrence: US)
  Receive Date: 20160307
  Receipt Date: 20160408
  Transmission Date: 20160815
  Serious: Yes (Hospitalization, Other)
  Sender: FDA-Public Use
  Company Number: US-BRISTOL-MYERS SQUIBB COMPANY-BMS-2016-015487

PATIENT
  Age: 69 Year
  Sex: Male
  Weight: 118.3 kg

DRUGS (5)
  1. LENALIDOMIDE [Suspect]
     Active Substance: LENALIDOMIDE
     Indication: PLASMA CELL MYELOMA
     Dosage: 300 MG, UNK
     Route: 065
     Dates: start: 20160209, end: 20160220
  2. DEXAMETHASONE. [Suspect]
     Active Substance: DEXAMETHASONE
     Indication: PLASMA CELL MYELOMA
     Dosage: 140 MG, UNK
     Route: 065
     Dates: start: 20160209, end: 20160220
  3. LASIX [Concomitant]
     Active Substance: FUROSEMIDE
     Indication: PRODUCT USED FOR UNKNOWN INDICATION
     Route: 065
  4. ELOTUZUMAB. [Suspect]
     Active Substance: ELOTUZUMAB
     Indication: PLASMA CELL MYELOMA
     Dosage: 2494 MG, UNK
     Route: 065
     Dates: start: 20160209, end: 20160219
  5. BORTEZOMIB [Suspect]
     Active Substance: BORTEZOMIB
     Indication: PLASMA CELL MYELOMA
     Dosage: 12.8 MG, UNK
     Route: 065
     Dates: start: 20160209, end: 20160219

REACTIONS (4)
  - Pneumonia [Not Recovered/Not Resolved]
  - Syncope [Recovering/Resolving]
  - Hypoxia [Not Recovered/Not Resolved]
  - Muscular weakness [Not Recovered/Not Resolved]

NARRATIVE: CASE EVENT DATE: 20160221
